FAERS Safety Report 5250463-7 (Version None)
Quarter: 2007Q1

REPORT INFORMATION
  Report Type: 
  Country: None (occurrence: None)
  Receive Date: 20070228
  Receipt Date: 20060419
  Transmission Date: 20070707
  Serious: No
  Sender: FDA-Public Use
  Company Number: US-GLAXOSMITHKLINE-A0602469A

PATIENT
  Age: 31 Year
  Sex: Female

DRUGS (3)
  1. LAMICTAL [Suspect]
     Indication: EPILEPSY
     Dosage: 150MG TWICE PER DAY
     Route: 048
  2. DILANTIN [Concomitant]
  3. ADVIL [Concomitant]

REACTIONS (4)
  - HEADACHE [None]
  - INFLUENZA [None]
  - INSOMNIA [None]
  - NAUSEA [None]
